FAERS Safety Report 24088829 (Version 13)
Quarter: 2025Q3

REPORT INFORMATION
  Report Type: Report from Study
  Country: AR (occurrence: AR)
  Receive Date: 20240715
  Receipt Date: 20250910
  Transmission Date: 20251021
  Serious: Yes (Hospitalization)
  Sender: NOVARTIS
  Company Number: AR-002147023-NVSC2024AR144788

PATIENT
  Age: 0 Year
  Sex: Female

DRUGS (2)
  1. ZOLGENSMA [Suspect]
     Active Substance: ONASEMNOGENE ABEPARVOVEC-XIOI
     Indication: Spinal muscular atrophy
     Route: 042
     Dates: start: 20240503, end: 20240503
  2. PREDNISONE [Concomitant]
     Active Substance: PREDNISONE
     Indication: Product used for unknown indication
     Dosage: 0.1 MG, QD, UNDER PROCESS OF DOSE DECREASE OF CORTICOIDS (DELTISONE) VIA ORAL (CURRENTLY 0.1 MG A DA
     Route: 048

REACTIONS (15)
  - Rhinovirus infection [Recovering/Resolving]
  - Irritability [Unknown]
  - Agitation [Recovering/Resolving]
  - Respiratory tract infection viral [Recovering/Resolving]
  - Pyrexia [Recovering/Resolving]
  - Crying [Recovering/Resolving]
  - Oropharyngeal plaque [Unknown]
  - Secretion discharge [Recovered/Resolved]
  - Respiratory tract infection viral [Recovered/Resolved]
  - Pyrexia [Recovered/Resolved]
  - Cough [Recovering/Resolving]
  - Secretion discharge [Recovering/Resolving]
  - Respiratory disorder [Recovering/Resolving]
  - Growth disorder [Unknown]
  - Weight decreased [Recovering/Resolving]

NARRATIVE: CASE EVENT DATE: 20240701
